FAERS Safety Report 24422410 (Version 1)
Quarter: 2024Q4

REPORT INFORMATION
  Report Type: Spontaneous
  Country: US (occurrence: None)
  Receive Date: 20241009
  Receipt Date: 20241009
  Transmission Date: 20250115
  Serious: Yes (Hospitalization)
  Sender: Public
  Company Number: None

PATIENT
  Age: 78 Year
  Sex: Male

DRUGS (2)
  1. APIXABAN [Suspect]
     Active Substance: APIXABAN
     Indication: Atrial fibrillation
     Dosage: FREQUENCY : TWICE A DAY;?
     Route: 048
     Dates: start: 20240614, end: 20240625
  2. ASPIRIN 81MG [Suspect]
     Active Substance: ASPIRIN
     Dosage: FREQUENCY : DAILY;?
     Route: 048
     Dates: end: 20240628

REACTIONS (2)
  - Lower gastrointestinal haemorrhage [None]
  - Radiation proctitis [None]

NARRATIVE: CASE EVENT DATE: 20240625
